FAERS Safety Report 5238065-X (Version None)
Quarter: 2007Q1

REPORT INFORMATION
  Report Type: 
  Country: None (occurrence: None)
  Receive Date: 20070215
  Receipt Date: 20070205
  Transmission Date: 20070707
  Serious: Yes (Hospitalization)
  Sender: FDA-Public Use
  Company Number: US-JNJFOC-20061202935

PATIENT
  Sex: Male
  Weight: 47.4 kg

DRUGS (9)
  1. INFLIXIMAB [Suspect]
     Indication: CROHN'S DISEASE
     Route: 042
  2. VITAMIN CAP [Concomitant]
  3. 5-ASA [Concomitant]
     Route: 048
  4. 6-MP [Concomitant]
  5. METRONIDAZOLE [Concomitant]
  6. CIPRO [Concomitant]
  7. PENTASA [Concomitant]
  8. PRILOSEC [Concomitant]
  9. COLACE [Concomitant]

REACTIONS (1)
  - PERIANAL ABSCESS [None]
